FAERS Safety Report 23836139 (Version 2)
Quarter: 2024Q3

REPORT INFORMATION
  Report Type: Spontaneous
  Country: DE (occurrence: DE)
  Receive Date: 20240509
  Receipt Date: 20240730
  Transmission Date: 20241016
  Serious: Yes (Death, Other)
  Sender: AUROBINDO
  Company Number: DE-AstraZeneca-2019SF43478

PATIENT
  Age: 26 Year
  Sex: Male
  Weight: 85 kg

DRUGS (10)
  1. QUETIAPINE [Suspect]
     Active Substance: QUETIAPINE
     Indication: Schizoaffective disorder
     Dosage: 50 MILLIGRAM
     Route: 048
     Dates: start: 20180824
  2. QUETIAPINE [Suspect]
     Active Substance: QUETIAPINE
     Indication: Product used for unknown indication
  3. GLECAPREVIR\PIBRENTASVIR [Suspect]
     Active Substance: GLECAPREVIR\PIBRENTASVIR
     Indication: Chronic hepatitis C
     Dosage: 420 MILLIGRAM, ONCE A DAY
     Route: 048
     Dates: start: 20190725
  4. MORPHINE SULFATE [Suspect]
     Active Substance: MORPHINE SULFATE
     Indication: Schizoaffective disorder
     Dosage: 50 MILLIGRAM
     Route: 048
     Dates: start: 20180824
  5. MORPHINE SULFATE [Suspect]
     Active Substance: MORPHINE SULFATE
     Indication: Product used for unknown indication
     Dosage: UNK
     Route: 048
     Dates: start: 20180831
  6. MORPHINE SULFATE [Suspect]
     Active Substance: MORPHINE SULFATE
     Indication: Drug dependence
  7. IVY EXTRACT [Concomitant]
     Active Substance: IVY EXTRACT
     Indication: Product used for unknown indication
     Dosage: COUGH LIQUID
     Route: 065
     Dates: start: 20190919, end: 20190924
  8. CLARITHROMYCIN [Concomitant]
     Active Substance: CLARITHROMYCIN
     Indication: Abscess limb
     Dosage: UNK
     Route: 065
     Dates: start: 20190917, end: 20190917
  9. CLINDAMYCIN [Concomitant]
     Active Substance: CLINDAMYCIN
     Indication: Abscess limb
     Dosage: UNK
     Route: 065
     Dates: start: 20190918, end: 20190920
  10. PANTOPRAZOLE [Concomitant]
     Active Substance: PANTOPRAZOLE
     Indication: Prophylaxis
     Dosage: UNK
     Route: 065
     Dates: start: 20190917, end: 20190920

REACTIONS (4)
  - Poisoning [Fatal]
  - Urine alcohol test positive [Fatal]
  - Drug screen positive [Fatal]
  - Fall [Fatal]

NARRATIVE: CASE EVENT DATE: 20200221
